FAERS Safety Report 11082009 (Version 1)
Quarter: 2015Q2

REPORT INFORMATION
  Report Type: Spontaneous
  Country: US (occurrence: US)
  Receive Date: 20150501
  Receipt Date: 20150501
  Transmission Date: 20150821
  Serious: No
  Sender: FDA-Public Use
  Company Number: US-PFIZER INC-2015144401

PATIENT
  Age: 13 Year
  Sex: Male
  Weight: 137.41 kg

DRUGS (1)
  1. VIAGRA [Suspect]
     Active Substance: SILDENAFIL CITRATE
     Indication: LIBIDO INCREASED
     Dosage: 1500 MG, UNK
     Dates: start: 201504

REACTIONS (5)
  - Erection increased [Unknown]
  - Intentional product misuse [Unknown]
  - Penile pain [Unknown]
  - Drug administered to patient of inappropriate age [Unknown]
  - Skin discolouration [Unknown]

NARRATIVE: CASE EVENT DATE: 201504
